FAERS Safety Report 10154741 (Version 1)
Quarter: 2014Q2

REPORT INFORMATION
  Report Type: Spontaneous
  Country: US (occurrence: None)
  Receive Date: 20140505
  Receipt Date: 20140505
  Transmission Date: 20141212
  Serious: No
  Sender: FDA-Public Use
  Company Number: None

PATIENT
  Age: 13 Year
  Sex: Male
  Weight: 77.57 kg

DRUGS (4)
  1. ADDERALL [Suspect]
     Indication: ATTENTION DEFICIT/HYPERACTIVITY DISORDER
     Route: 048
  2. ADDERALL [Suspect]
     Indication: PRODUCT USED FOR UNKNOWN INDICATION
     Route: 048
  3. DEXADRINE XR [Concomitant]
  4. DEXADRINE ER [Concomitant]

REACTIONS (2)
  - Product substitution issue [None]
  - Drug ineffective [None]
